FAERS Safety Report 6834744-9 (Version None)
Quarter: 2010Q3

REPORT INFORMATION
  Report Type: 
  Country: None (occurrence: None)
  Receive Date: 20100712
  Receipt Date: 20070418
  Transmission Date: 20110219
  Serious: No
  Sender: FDA-Public Use
  Company Number: US-PFIZER INC-2007031558

PATIENT
  Sex: Female
  Weight: 61.23 kg

DRUGS (7)
  1. CHANTIX [Suspect]
     Indication: SMOKING CESSATION THERAPY
     Route: 048
     Dates: start: 20070329
  2. ZOLOFT [Concomitant]
  3. VALTREX [Concomitant]
  4. HYDROCODONE BITARTRATE [Concomitant]
  5. OXYCODONE HCL [Concomitant]
     Indication: KNEE OPERATION
  6. VALIUM [Concomitant]
     Indication: ANXIETY
  7. DEMEROL [Concomitant]

REACTIONS (6)
  - AGGRESSION [None]
  - IRRITABILITY [None]
  - MIGRAINE [None]
  - NAUSEA [None]
  - VISION BLURRED [None]
  - VOMITING [None]
